FAERS Safety Report 6799684-2 (Version None)
Quarter: 2010Q2

REPORT INFORMATION
  Report Type: 
  Country: None (occurrence: None)
  Receive Date: 20100624
  Receipt Date: 20100608
  Transmission Date: 20101027
  Serious: Yes (Other)
  Sender: FDA-Public Use
  Company Number: B0661065A

PATIENT
  Age: 32 Year
  Sex: Male

DRUGS (2)
  1. ALBUTEROL SULFATE [Suspect]
     Indication: ASTHMA
     Dosage: NEBULISER
  2. MECHANICAL VENTILATION [Concomitant]

REACTIONS (4)
  - ACUTE RESPIRATORY FAILURE [None]
  - ANION GAP INCREASED [None]
  - LACTIC ACIDOSIS [None]
  - NO THERAPEUTIC RESPONSE [None]
